FAERS Safety Report 17007918 (Version 3)
Quarter: 2020Q3

REPORT INFORMATION
  Report Type: Spontaneous
  Country: US (occurrence: US)
  Receive Date: 20191108
  Receipt Date: 20200724
  Transmission Date: 20201102
  Serious: Yes (Hospitalization, Disabling, Congenital Anomaly, Other)
  Sender: FDA-Public Use
  Company Number: US-SA-2019SA305011

PATIENT

DRUGS (9)
  1. LISINOPRIL. [Concomitant]
     Active Substance: LISINOPRIL
     Indication: BLOOD PRESSURE INCREASED
     Route: 064
  2. PEPCID [ALUMINIUM HYDROXIDE GEL, DRIED;MAGNESIUM CARBONATE] [Concomitant]
     Active Substance: ALUMINUM HYDROXIDE\MAGNESIUM CARBONATE
     Dosage: UNK
     Dates: start: 19990913, end: 19990914
  3. RANITIDINE. [Concomitant]
     Active Substance: RANITIDINE
     Dosage: UNK
     Dates: start: 19990915, end: 19990915
  4. POTASSIUM CHLORIDE. [Concomitant]
     Active Substance: POTASSIUM CHLORIDE
     Dosage: UNK
     Dates: start: 19990831, end: 19990831
  5. SERTRALINE [Concomitant]
     Active Substance: SERTRALINE HYDROCHLORIDE
     Indication: STRESS
  6. ZANTAC [Concomitant]
     Active Substance: RANITIDINE HYDROCHLORIDE
     Dosage: UNK
     Dates: start: 19990916, end: 19990916
  7. CLOMID [Suspect]
     Active Substance: CLOMIPHENE CITRATE
     Route: 064
  8. TOPROL XL [Concomitant]
     Active Substance: METOPROLOL SUCCINATE
     Indication: HEADACHE
     Route: 064
  9. MORPHINE SULFATE. [Concomitant]
     Active Substance: MORPHINE SULFATE
     Dosage: UNK
     Dates: start: 19990827, end: 19990904

REACTIONS (57)
  - Chronic kidney disease [Not Recovered/Not Resolved]
  - Fatigue [Unknown]
  - Dacryostenosis congenital [Unknown]
  - Urinary tract malformation [Unknown]
  - Cardiac murmur [Unknown]
  - Premature baby [Unknown]
  - Pneumothorax [Unknown]
  - Respiratory distress [Unknown]
  - Acrochordon [Unknown]
  - Dysphagia [Recovered/Resolved]
  - VACTERL syndrome [Not Recovered/Not Resolved]
  - Bladder agenesis [Not Recovered/Not Resolved]
  - Spine malformation [Unknown]
  - Neurogenic bowel [Unknown]
  - Blister [Unknown]
  - Congenital genitourinary abnormality [Not Recovered/Not Resolved]
  - Oculoauriculovertebral dysplasia [Unknown]
  - Pneumonia klebsiella [Unknown]
  - Conjunctivitis [Recovered/Resolved]
  - Sepsis [Unknown]
  - Anal atresia [Unknown]
  - Urinary tract infection [Recovered/Resolved]
  - Congenital bladder anomaly [Unknown]
  - Vaginal disorder [Not Recovered/Not Resolved]
  - Abdominal pain [Unknown]
  - Clinodactyly [Unknown]
  - Vesicoureteric reflux [Not Recovered/Not Resolved]
  - Eye discharge [Recovered/Resolved]
  - Hyperbilirubinaemia [Recovered/Resolved]
  - Erythema toxicum neonatorum [Unknown]
  - Haematuria [Unknown]
  - Erythema [Unknown]
  - Hypertension [Not Recovered/Not Resolved]
  - Dyspnoea [Unknown]
  - Tracheo-oesophageal fistula [Recovered/Resolved]
  - Patent ductus arteriosus [Unknown]
  - Multiple congenital abnormalities [Unknown]
  - Cognitive disorder [Not Recovered/Not Resolved]
  - Polyp [Recovered/Resolved]
  - Kidney small [Unknown]
  - Constipation [Unknown]
  - Loss of personal independence in daily activities [Unknown]
  - Foetal exposure during pregnancy [Not Recovered/Not Resolved]
  - Dermoid cyst [Unknown]
  - Pyrexia [Unknown]
  - Foetal growth restriction [Unknown]
  - Genitalia external ambiguous [Unknown]
  - Condition aggravated [Recovered/Resolved]
  - Diarrhoea [Unknown]
  - Pruritus [Unknown]
  - Kidney fibrosis [Not Recovered/Not Resolved]
  - Neurogenic bladder [Not Recovered/Not Resolved]
  - Vomiting [Unknown]
  - Pyelonephritis [Unknown]
  - Adrenogenital syndrome [Unknown]
  - Oesophageal atresia [Recovered/Resolved]
  - Pyrexia [Recovered/Resolved]

NARRATIVE: CASE EVENT DATE: 1999
